FAERS Safety Report 12649885 (Version 5)
Quarter: 2018Q1

REPORT INFORMATION
  Report Type: Report from Study
  Country: JP (occurrence: JP)
  Receive Date: 20160812
  Receipt Date: 20180323
  Transmission Date: 20180508
  Serious: Yes (Hospitalization)
  Sender: FDA-Public Use
  Company Number: JP-ASTRAZENECA-2016SE85100

PATIENT
  Age: 24225 Day
  Sex: Female
  Weight: 64 kg

DRUGS (29)
  1. MOBIC [Concomitant]
     Active Substance: MELOXICAM
     Route: 048
  2. BAYASPIRIN [Concomitant]
     Active Substance: ASPIRIN
     Route: 048
  3. LANTUS [Concomitant]
     Active Substance: INSULIN GLARGINE
     Indication: TYPE 2 DIABETES MELLITUS
     Route: 065
     Dates: start: 20150525
  4. VOGLIBOSE OD [Concomitant]
     Active Substance: VOGLIBOSE
     Indication: TYPE 2 DIABETES MELLITUS
     Route: 048
     Dates: start: 20150928, end: 20151227
  5. FORXIGA [Suspect]
     Active Substance: DAPAGLIFLOZIN
     Indication: TYPE 2 DIABETES MELLITUS
     Route: 048
     Dates: start: 20150305, end: 20160518
  6. OPALMON [Concomitant]
     Active Substance: LIMAPROST
     Route: 048
  7. MUCOSTA [Concomitant]
     Active Substance: REBAMIPIDE
     Route: 048
  8. RHEUMATREX [Concomitant]
     Active Substance: METHOTREXATE SODIUM
     Dosage: ON SUNDAYS ONLY
     Route: 048
  9. VOLLEY [Concomitant]
     Active Substance: BUTENAFINE HYDROCHLORIDE
     Dosage: OPTIMAL DOSE
     Route: 062
     Dates: start: 20150318, end: 20150705
  10. CARBOCISTEINE [Concomitant]
     Active Substance: CARBOCYSTEINE
     Route: 048
     Dates: end: 20150401
  11. FRANDOL S [Concomitant]
     Active Substance: ISOSORBIDE DINITRATE
     Route: 062
  12. PLAVIX [Concomitant]
     Active Substance: CLOPIDOGREL BISULFATE
     Route: 048
  13. MAGNESIUM OXIDE. [Concomitant]
     Active Substance: MAGNESIUM OXIDE
     Route: 048
     Dates: end: 20140405
  14. METGLUCO [Concomitant]
     Active Substance: METFORMIN HYDROCHLORIDE
     Indication: TYPE 2 DIABETES MELLITUS
     Route: 048
  15. OMEPRAZON [Concomitant]
     Active Substance: OMEPRAZOLE
     Route: 048
     Dates: end: 20160105
  16. RIMATIL [Concomitant]
     Active Substance: BUCILLAMINE
     Route: 048
  17. RHEUMATREX [Concomitant]
     Active Substance: METHOTREXATE SODIUM
     Dosage: ON SATURDAYS ONLY
     Route: 048
     Dates: end: 20151117
  18. INFLUENZA HA VACCINE [Concomitant]
     Active Substance: INFLUENZA VIRUS VACCINE
     Indication: PROPHYLAXIS
     Route: 065
     Dates: start: 20160106, end: 20160106
  19. CRESTOR [Concomitant]
     Active Substance: ROSUVASTATIN CALCIUM
     Route: 048
  20. CLARITHROMYCIN. [Concomitant]
     Active Substance: CLARITHROMYCIN
     Route: 048
     Dates: start: 20150306, end: 20150401
  21. CALBLOCK [Concomitant]
     Active Substance: AZELNIDIPINE
     Route: 048
  22. LANTUS [Concomitant]
     Active Substance: INSULIN GLARGINE
     Indication: TYPE 2 DIABETES MELLITUS
     Route: 065
     Dates: end: 20150524
  23. OLMETEC [Concomitant]
     Active Substance: OLMESARTAN MEDOXOMIL
     Route: 048
  24. MYONAL [Concomitant]
     Active Substance: EPERISONE HYDROCHLORIDE
     Route: 048
  25. MOHRUS TAPE [Concomitant]
     Active Substance: KETOPROFEN
     Route: 062
  26. OMEPRAZOLE. [Concomitant]
     Active Substance: OMEPRAZOLE
     Route: 048
     Dates: start: 20160106
  27. THYRADIN S [Concomitant]
     Active Substance: LEVOTHYROXINE SODIUM
     Route: 048
  28. AMBROXOL HYDROCHLORIDE [Concomitant]
     Active Substance: AMBROXOL HYDROCHLORIDE
     Route: 048
     Dates: end: 20150401
  29. ALLERMIST [Concomitant]
     Active Substance: FLUTICASONE FUROATE
     Route: 045
     Dates: end: 20150401

REACTIONS (11)
  - Seborrhoeic dermatitis [Recovered/Resolved]
  - Osteoarthritis [Recovering/Resolving]
  - Arthralgia [Recovered/Resolved]
  - Ingrowing nail [Recovering/Resolving]
  - Arthropod sting [Recovering/Resolving]
  - Chest pain [Recovering/Resolving]
  - Anal fissure [Not Recovered/Not Resolved]
  - Dizziness [Recovering/Resolving]
  - Diarrhoea [Recovered/Resolved]
  - Oropharyngeal cancer [Not Recovered/Not Resolved]
  - Muscle spasms [Recovered/Resolved]

NARRATIVE: CASE EVENT DATE: 20150318
